FAERS Safety Report 12943191 (Version 1)
Quarter: 2016Q4

REPORT INFORMATION
  Report Type: Report from Study
  Country: JP (occurrence: JP)
  Receive Date: 20161115
  Receipt Date: 20161115
  Transmission Date: 20170207
  Serious: Yes (Death)
  Sender: FDA-Public Use
  Company Number: JP-SA-2016SA205901

PATIENT
  Age: 66 Year
  Sex: Male
  Weight: 39.8 kg

DRUGS (24)
  1. SUNRABIN [Suspect]
     Active Substance: ENOCITABINE
     Route: 065
     Dates: start: 20130608, end: 20130614
  2. REBAMIPIDE [Concomitant]
     Active Substance: REBAMIPIDE
     Indication: PROPHYLAXIS
     Route: 048
     Dates: start: 20130613, end: 20130617
  3. NISSEKI POLYGLOBIN-N [Concomitant]
     Active Substance: HUMAN IMMUNOGLOBULIN G
     Indication: CYTOMEGALOVIRUS INFECTION
     Route: 042
     Dates: start: 20130529, end: 20130531
  4. FOSCAVIR [Concomitant]
     Active Substance: FOSCARNET SODIUM
     Indication: CYTOMEGALOVIRUS INFECTION
     Route: 042
     Dates: start: 20130529, end: 20130617
  5. CEFEPIME HYDROCHLORIDE. [Concomitant]
     Active Substance: CEFEPIME HYDROCHLORIDE
     Route: 042
     Dates: start: 20130616
  6. TRANSAMIN [Concomitant]
     Active Substance: TRANEXAMIC ACID
     Dates: start: 20130617
  7. BECLOMETASONE [Concomitant]
     Active Substance: BECLOMETHASONE DIPROPIONATE
     Indication: GRAFT VERSUS HOST DISEASE
     Route: 048
     Dates: start: 20130501, end: 20130608
  8. CEFOPERAZONE SODIUM/SULBACTAM SODIUM [Concomitant]
     Indication: INFECTION
     Route: 042
     Dates: start: 20130502, end: 20130527
  9. PROGRAF [Concomitant]
     Active Substance: TACROLIMUS\TACROLIMUS ANHYDROUS
     Indication: PROPHYLAXIS AGAINST GRAFT VERSUS HOST DISEASE
     Dates: start: 20130320, end: 20130616
  10. ACLACINON [Suspect]
     Active Substance: ACLARUBICIN HYDROCHLORIDE
     Route: 065
     Dates: start: 20130608, end: 20130614
  11. ALLOPURINOL. [Concomitant]
     Active Substance: ALLOPURINOL
     Indication: GOUT
     Route: 048
     Dates: end: 20130617
  12. DENOSINE [Concomitant]
     Active Substance: GANCICLOVIR
     Indication: CYTOMEGALOVIRUS INFECTION
     Route: 042
     Dates: start: 20130430, end: 20130529
  13. ADONA [Concomitant]
     Active Substance: CARBAZOCHROME SODIUM SULFONATE
     Dates: start: 20130617
  14. DECADRON [Concomitant]
     Active Substance: DEXAMETHASONE
     Indication: GRAFT VERSUS HOST DISEASE
     Dates: start: 20130520, end: 20130611
  15. NEUTROGIN [Concomitant]
     Active Substance: LENOGRASTIM
     Dates: start: 20130616, end: 20130616
  16. THYMOGLOBULINE [Suspect]
     Active Substance: LAPINE T-LYMPHOCYTE IMMUNE GLOBULIN
     Indication: ACUTE GRAFT VERSUS HOST DISEASE
     Route: 042
     Dates: start: 20130508, end: 20130508
  17. MUCOSTA [Concomitant]
     Active Substance: REBAMIPIDE
     Indication: PROPHYLAXIS
     Route: 048
     Dates: end: 20130612
  18. HYALEIN [Concomitant]
     Active Substance: HYALURONATE SODIUM
     Indication: DRY EYE
     Dates: start: 20130415, end: 20130617
  19. PRIDOL [Concomitant]
     Active Substance: METHYLPREDNISOLONE SODIUM SUCCINATE
     Indication: PROPHYLAXIS
     Dates: start: 20130430, end: 20130520
  20. OLMETEC [Concomitant]
     Active Substance: OLMESARTAN MEDOXOMIL
     Indication: HYPERTENSION
     Route: 048
     Dates: end: 20130617
  21. CIMETIDINE [Concomitant]
     Active Substance: CIMETIDINE
     Indication: PROPHYLAXIS
     Dates: start: 20130313, end: 20130617
  22. FUNGUARD [Concomitant]
     Active Substance: MICAFUNGIN SODIUM
     Indication: INFECTION PROPHYLAXIS
     Dates: start: 20130501, end: 20130616
  23. OMEPRAZOLE. [Concomitant]
     Active Substance: OMEPRAZOLE
     Indication: PROPHYLAXIS
     Dates: start: 20130608, end: 20130612
  24. DEXART [Concomitant]
     Active Substance: DEXAMETHASONE SODIUM PHOSPHATE
     Indication: GRAFT VERSUS HOST DISEASE
     Dates: start: 20130612, end: 20130616

REACTIONS (5)
  - Neutrophil count decreased [Unknown]
  - Myelodysplastic syndrome [Fatal]
  - Pulmonary haemorrhage [Fatal]
  - Pneumonia streptococcal [Fatal]
  - Disease recurrence [None]

NARRATIVE: CASE EVENT DATE: 20130529
